FAERS Safety Report 18827126 (Version 2)
Quarter: 2021Q1

REPORT INFORMATION
  Report Type: Spontaneous
  Country: US (occurrence: US)
  Receive Date: 20210202
  Receipt Date: 20210217
  Transmission Date: 20210419
  Serious: No
  Sender: FDA-Public Use
  Company Number: US-AMGEN-USASP2021015910

PATIENT
  Age: 76 Year
  Sex: Female

DRUGS (4)
  1. CALCIUM [Suspect]
     Active Substance: CALCIUM
     Indication: PRODUCT USED FOR UNKNOWN INDICATION
     Route: 065
  2. OTEZLA [Suspect]
     Active Substance: APREMILAST
     Indication: PSORIASIS
     Dosage: UNK
     Route: 065
     Dates: start: 202006
  3. ZINC. [Suspect]
     Active Substance: ZINC
     Indication: PRODUCT USED FOR UNKNOWN INDICATION
     Route: 065
  4. VITAMIN D3 [Suspect]
     Active Substance: CHOLECALCIFEROL
     Indication: IMMUNE SYSTEM DISORDER
     Route: 065

REACTIONS (8)
  - Intentional dose omission [Unknown]
  - Decreased immune responsiveness [Not Recovered/Not Resolved]
  - Diarrhoea [Unknown]
  - Illness [Unknown]
  - Psoriasis [Unknown]
  - Flatulence [Not Recovered/Not Resolved]
  - Adverse event [Recovered/Resolved]
  - Nausea [Unknown]

NARRATIVE: CASE EVENT DATE: 2020
